FAERS Safety Report 22228508 (Version 1)
Quarter: 2023Q2

REPORT INFORMATION
  Report Type: Spontaneous
  Country: FR (occurrence: FR)
  Receive Date: 20230419
  Receipt Date: 20230419
  Transmission Date: 20230721
  Serious: Yes (Hospitalization)
  Sender: FDA-Public Use
  Company Number: None

PATIENT
  Age: 44 Year
  Sex: Female

DRUGS (3)
  1. ALPRAZOLAM [Suspect]
     Active Substance: ALPRAZOLAM
     Indication: Product used for unknown indication
     Dosage: 3 DOSAGE FORM (3 TABLETS OF 7.5 MG)
     Route: 048
     Dates: start: 20230325
  2. TRAMADOL [Suspect]
     Active Substance: TRAMADOL
     Indication: Product used for unknown indication
     Dosage: 3 DOSAGE FORM (3 TABLETS OF 7.5 MG)
     Route: 048
     Dates: start: 20230325
  3. MORPHINE [Suspect]
     Active Substance: MORPHINE
     Indication: Product used for unknown indication
     Dosage: UNK
     Route: 048
     Dates: start: 20230325

REACTIONS (2)
  - Toxicity to various agents [Recovering/Resolving]
  - Coma [Unknown]

NARRATIVE: CASE EVENT DATE: 20230325
